FAERS Safety Report 11130956 (Version 3)
Quarter: 2015Q3

REPORT INFORMATION
  Report Type: Spontaneous
  Country: US (occurrence: US)
  Receive Date: 20150522
  Receipt Date: 20150716
  Transmission Date: 20151125
  Serious: Yes (Other)
  Sender: FDA-Public Use
  Company Number: US-BIOGENIDEC-2015BI067612

PATIENT
  Age: 62 Year
  Sex: Male
  Weight: 95 kg

DRUGS (5)
  1. BACLOFEN. [Concomitant]
     Active Substance: BACLOFEN
  2. AMPYRA [Concomitant]
     Active Substance: DALFAMPRIDINE
     Indication: GAIT DISTURBANCE
     Route: 048
     Dates: start: 20150126, end: 20150502
  3. FLOMAX [Concomitant]
     Active Substance: TAMSULOSIN HYDROCHLORIDE
  4. PLEGRIDY [Suspect]
     Active Substance: PEGINTERFERON BETA-1A
     Indication: MULTIPLE SCLEROSIS
     Route: 058
     Dates: start: 20150302, end: 20150428
  5. PLEGRIDY [Suspect]
     Active Substance: PEGINTERFERON BETA-1A
     Indication: MOVEMENT DISORDER
     Route: 058
     Dates: start: 20150302, end: 20150428

REACTIONS (8)
  - Treatment failure [Unknown]
  - Musculoskeletal stiffness [Not Recovered/Not Resolved]
  - Muscular weakness [Not Recovered/Not Resolved]
  - Hyperhidrosis [Recovered/Resolved]
  - Pruritus [Recovered/Resolved]
  - Muscle spasticity [Not Recovered/Not Resolved]
  - Paralysis [Recovered/Resolved]
  - Muscle fatigue [Not Recovered/Not Resolved]
